FAERS Safety Report 5351360-9 (Version None)
Quarter: 2007Q2

REPORT INFORMATION
  Report Type: 
  Country: None (occurrence: None)
  Receive Date: 20070608
  Receipt Date: 20070530
  Transmission Date: 20071010
  Serious: Yes (Hospitalization)
  Sender: FDA-Public Use
  Company Number: DE-PFIZER INC-2007045006

PATIENT
  Sex: Male
  Weight: 84 kg

DRUGS (5)
  1. GENOTROPIN [Suspect]
     Indication: HYPOPITUITARISM
     Dosage: DAILY DOSE:.4MG
     Route: 058
     Dates: start: 20060118, end: 20060530
  2. HYDROCORTISON [Concomitant]
     Dosage: DAILY DOSE:10MG
  3. L-THYROXIN [Concomitant]
     Dosage: DAILY DOSE:125MG
  4. TESTOSTERONE [Concomitant]
     Dosage: DAILY DOSE:1000MG
  5. SIMVASTATIN [Concomitant]
     Dosage: TEXT:1 TABLET DAY

REACTIONS (1)
  - PITUITARY TUMOUR BENIGN [None]
